FAERS Safety Report 9025921 (Version 1)
Quarter: 2012Q4

REPORT INFORMATION
  Report Type: Spontaneous
  Country: US (occurrence: None)
  Receive Date: 20121217
  Receipt Date: 20121217
  Transmission Date: 20130627
  Serious: Yes (Other)
  Sender: FDA-Public Use
  Company Number: None

PATIENT
  Age: 73 Year
  Sex: Female
  Weight: 63.5 kg

DRUGS (1)
  1. AZITHROMYCIN [Suspect]
     Indication: SINUS INFECTION
     Dosage: Sub for Zithromax Z pak
2 first day
     Dates: start: 20121027, end: 20121028

REACTIONS (3)
  - Abdominal discomfort [None]
  - Abdominal pain upper [None]
  - Myalgia [None]
